FAERS Safety Report 21266482 (Version 1)
Quarter: 2022Q3

REPORT INFORMATION
  Report Type: Other
  Country: ZA (occurrence: ZA)
  Receive Date: 20220829
  Receipt Date: 20220829
  Transmission Date: 20221027
  Serious: Yes (Other)
  Sender: FDA-Public Use
  Company Number: ZA-MACLEODS PHARMA UK LTD-MAC2022036934

PATIENT

DRUGS (2)
  1. EFAVIRENZ [Suspect]
     Active Substance: EFAVIRENZ
     Indication: HIV infection
     Dosage: 1100 MILLIGRAM, QD (1 COURSES, EXPOSURE PRIOR TO CONCEPTION-YES AND DURING FIRST TRIMESTER)
     Route: 048
     Dates: start: 20170224
  2. EMTRICITABINE\TENOFOVIR [Suspect]
     Active Substance: EMTRICITABINE\TENOFOVIR
     Indication: HIV infection
     Dosage: 1100 MILLIGRAM, QD (1 COURSES, EXPOSURE PRIOR TO CONCEPTION AND DURING FIRST TRIMESTER)
     Route: 048
     Dates: start: 20170224

REACTIONS (2)
  - Abortion spontaneous [Unknown]
  - Maternal exposure during pregnancy [Unknown]
